FAERS Safety Report 9034546 (Version 1)
Quarter: 2012Q4

REPORT INFORMATION
  Report Type: Spontaneous
  Country: US (occurrence: None)
  Receive Date: 20121218
  Receipt Date: 20121218
  Transmission Date: 20130627
  Serious: Yes (Other)
  Sender: FDA-Public Use
  Company Number: 2010026845

PATIENT
  Sex: Female
  Weight: 95.26 kg

DRUGS (15)
  1. IMMUNOGLOBULIN HUMAN NORMAL [Suspect]
     Dosage: 1x/week, OCT-2008: 80 ml weekly in 5 sites over 2 hours
     Route: 058
  2. OXYCONTIN (OXYCODONE HYDROCHLORIDE) [Concomitant]
  3. CYMBALTA (DULOXETINE HYDROCHLORIDE) [Concomitant]
  4. AMOXICILLIN (AMOXICILLIN) [Concomitant]
  5. ADVAIR 250/50 (SERETIDE /01420901/) [Concomitant]
  6. PROVENTIL (SALBUTAMOL) [Concomitant]
  7. VALTREX (VALACICLOVIR HYDROCHLORIDE) [Concomitant]
  8. PREMARIN (ESTROGENS CONJUGATED) [Concomitant]
  9. LEVOTHYROXINE (LEVOTHYROXINE) [Concomitant]
  10. MAXALT (RIZATRIPTAN) [Concomitant]
  11. ZOCOR (SIMVASTATIN) [Concomitant]
  12. FLONASE (FLUTICASONE PROPIONATE) [Concomitant]
  13. BUMEX (BUMETANIDE) [Concomitant]
  14. TOPAMAX (TOPIRAMATE) [Concomitant]
  15. LEVAQUIN (LEVOFLOXACIN) [Concomitant]

REACTIONS (9)
  - Infusion site urticaria [None]
  - Fatigue [None]
  - Arthralgia [None]
  - Condition aggravated [None]
  - Migraine [None]
  - Diarrhoea [None]
  - Nausea [None]
  - Pneumonia [None]
  - Pleurisy [None]
